FAERS Safety Report 8270585-6 (Version None)
Quarter: 2012Q2

REPORT INFORMATION
  Report Type: 
  Country: None (occurrence: None)
  Receive Date: 20120410
  Receipt Date: 20120402
  Transmission Date: 20120825
  Serious: Yes (Death, Hospitalization, Other)
  Sender: FDA-Public Use
  Company Number: DE-BRISTOL-MYERS SQUIBB COMPANY-16170540

PATIENT
  Age: 58 Year
  Sex: Female
  Weight: 80 kg

DRUGS (1)
  1. YERVOY [Suspect]
     Indication: MALIGNANT MELANOMA
     Dosage: NO OF DOSE:4 240MG:1G6R114-29JUL11.19AUG11.08SEP11.1G6R114+1G6R12429SEP11
     Route: 042
     Dates: start: 20110729, end: 20110929

REACTIONS (4)
  - DIARRHOEA [None]
  - DEATH [None]
  - PANCREATIC INSUFFICIENCY [None]
  - TRANSAMINASES INCREASED [None]
